FAERS Safety Report 11116603 (Version 3)
Quarter: 2015Q2

REPORT INFORMATION
  Report Type: Spontaneous
  Country: JP (occurrence: JP)
  Receive Date: 20150515
  Receipt Date: 20150619
  Transmission Date: 20150821
  Serious: Yes (Hospitalization)
  Sender: FDA-Public Use
  Company Number: JP-KERYX BIOPHARMA UK LTD-2015JP000872

PATIENT

DRUGS (11)
  1. IMIDAPRIL HYDROCHLORIDE [Concomitant]
     Active Substance: IMIDAPRIL HYDROCHLORIDE
     Indication: HYPERTENSION
     Dosage: 5 MG, UNK
     Route: 048
  2. REMITCH [Concomitant]
     Active Substance: NALFURAFINE HYDROCHLORIDE
     Indication: PRURITUS
     Dosage: 2.5 ?G, UNK
     Route: 048
  3. MASHININGAN [Suspect]
     Active Substance: HERBALS
  4. RIONA [Suspect]
     Active Substance: FERRIC CITRATE ANHYDROUS
     Indication: HYPERPHOSPHATAEMIA
     Dosage: 500 MG, TID
     Route: 048
     Dates: start: 20150316, end: 20150329
  5. CALTAN [Concomitant]
     Active Substance: CALCIUM CARBONATE
     Indication: HYPERPHOSPHATAEMIA
     Dosage: 1000 MG, UNK
     Route: 048
  6. FEBURIC [Concomitant]
     Active Substance: FEBUXOSTAT
     Indication: HYPERURICAEMIA
     Dosage: 10 MG, UNK
     Route: 048
     Dates: start: 20150209
  7. DIART [Concomitant]
     Active Substance: AZOSEMIDE
     Indication: OEDEMA DUE TO RENAL DISEASE
     Dosage: 60 MG, UNK
     Route: 048
  8. FOSRENOL [Concomitant]
     Active Substance: LANTHANUM CARBONATE
     Indication: HYPERPHOSPHATAEMIA
     Dosage: 250 MG, UNK
     Route: 048
     Dates: start: 20150209
  9. HERBAL EXTRACT NOS [Concomitant]
     Active Substance: HERBALS
     Indication: CONSTIPATION
     Dosage: 2.5 G, UNK
     Route: 048
  10. NIFEDIPINE. [Concomitant]
     Active Substance: NIFEDIPINE
     Indication: HYPERTENSION
     Dosage: 20 MG, UNK
     Route: 048
  11. D-SORBITOL [Concomitant]
     Indication: NUTRITIONAL SUPPLEMENTATION
     Dosage: 30 ML
     Route: 048

REACTIONS (1)
  - Idiopathic urticaria [Recovered/Resolved]

NARRATIVE: CASE EVENT DATE: 20150327
